FAERS Safety Report 21149970 (Version 3)
Quarter: 2022Q3

REPORT INFORMATION
  Report Type: Report from Study
  Country: CN (occurrence: CN)
  Receive Date: 20220729
  Receipt Date: 20220912
  Transmission Date: 20221027
  Serious: Yes (Hospitalization)
  Sender: FDA-Public Use
  Company Number: CN-PFIZER INC-PV202200027279

PATIENT
  Age: 58 Year
  Sex: Female
  Weight: 52 kg

DRUGS (19)
  1. EPIRUBICIN HYDROCHLORIDE [Suspect]
     Active Substance: EPIRUBICIN HYDROCHLORIDE
     Indication: Triple negative breast cancer
     Dosage: 142 MG, EVERY 2 WEEKS
     Route: 042
     Dates: start: 20220510, end: 20220510
  2. EPIRUBICIN HYDROCHLORIDE [Suspect]
     Active Substance: EPIRUBICIN HYDROCHLORIDE
     Dosage: 113.6 MG, EVERY 2 WEEKS
     Route: 042
     Dates: start: 20220527, end: 20220527
  3. EPIRUBICIN HYDROCHLORIDE [Suspect]
     Active Substance: EPIRUBICIN HYDROCHLORIDE
     Dosage: 111.2 MG, EVERY 2 WEEKS
     Route: 042
     Dates: start: 20220615, end: 20220615
  4. PACLITAXEL [Suspect]
     Active Substance: PACLITAXEL
     Indication: Triple negative breast cancer
     Dosage: 158 MG, WEEKLY (3-WEEK DOSING FOLLOWED BY 1 WEEK OFF)
     Route: 042
     Dates: start: 20220101, end: 20220101
  5. CARBOPLATIN [Suspect]
     Active Substance: CARBOPLATIN
     Indication: Triple negative breast cancer
     Dosage: 191 MG, WEEKLY (3-WEEK DOSING FOLLOWED BY 1 WEEK OFF)
     Route: 042
     Dates: start: 20220101, end: 20220101
  6. CARBOPLATIN [Suspect]
     Active Substance: CARBOPLATIN
     Dosage: 182 MG, WEEKLY (3-WEEK DOSING FOLLOWED BY 1 WEEK OFF)
     Route: 042
     Dates: start: 20220111, end: 20220111
  7. CARBOPLATIN [Suspect]
     Active Substance: CARBOPLATIN
     Dosage: 198 MG, WEEKLY (3-WEEK DOSING FOLLOWED BY 1 WEEK OFF)
     Route: 042
     Dates: start: 20220118, end: 20220118
  8. CARBOPLATIN [Suspect]
     Active Substance: CARBOPLATIN
     Dosage: 158 MG, WEEKLY (3-WEEK DOSING FOLLOWED BY 1 WEEK OFF)
     Route: 042
     Dates: start: 20220207, end: 20220207
  9. CARBOPLATIN [Suspect]
     Active Substance: CARBOPLATIN
     Dosage: 216 MG, WEEKLY (3-WEEK DOSING FOLLOWED BY 1 WEEK OFF)
     Route: 042
     Dates: start: 20220214, end: 20220214
  10. CARBOPLATIN [Suspect]
     Active Substance: CARBOPLATIN
     Dosage: 182 MG, WEEKLY (3-WEEK DOSING FOLLOWED BY 1 WEEK OFF)
     Route: 042
     Dates: start: 20220305, end: 20220305
  11. CARBOPLATIN [Suspect]
     Active Substance: CARBOPLATIN
     Dosage: 210 MG, WEEKLY (3-WEEK DOSING FOLLOWED BY 1 WEEK OFF)
     Route: 042
     Dates: start: 20220315, end: 20220322
  12. CARBOPLATIN [Suspect]
     Active Substance: CARBOPLATIN
     Dosage: 214 MG, WEEKLY (3-WEEK DOSING FOLLOWED BY 1 WEEK OFF)
     Route: 042
     Dates: start: 20220409, end: 20220418
  13. CARBOPLATIN [Suspect]
     Active Substance: CARBOPLATIN
     Dosage: 210 MG, WEEKLY (3-WEEK DOSING FOLLOWED BY 1 WEEK OFF)
     Route: 042
     Dates: start: 20220425, end: 20220425
  14. INVESTIGATIONAL PRODUCT [Suspect]
     Active Substance: INVESTIGATIONAL PRODUCT
     Indication: Triple negative breast cancer
     Dosage: EVERY 2 WEEKS
     Route: 042
     Dates: start: 20220101, end: 20220615
  15. CYCLOPHOSPHAMIDE [Suspect]
     Active Substance: CYCLOPHOSPHAMIDE
     Indication: Triple negative breast cancer
     Dosage: 791 MG, EVERY 2 WEEKS
     Route: 042
     Dates: start: 20220510, end: 20220510
  16. CYCLOPHOSPHAMIDE [Suspect]
     Active Substance: CYCLOPHOSPHAMIDE
     Dosage: 632.8 MG, EVERY 2 WEEKS
     Route: 042
     Dates: start: 20220527, end: 20220527
  17. CYCLOPHOSPHAMIDE [Suspect]
     Active Substance: CYCLOPHOSPHAMIDE
     Dosage: 617.6 MG, EVERY 2 WEEKS
     Route: 042
     Dates: start: 20220615, end: 20220615
  18. BICYCLOL [Concomitant]
     Active Substance: BICYCLOL
     Indication: Prophylaxis
     Dosage: 50 MG, 3X/DAY
     Route: 048
     Dates: start: 20220704
  19. TENOFOVIR ALAFENAMIDE [Concomitant]
     Active Substance: TENOFOVIR ALAFENAMIDE
     Indication: Hepatitis B
     Dosage: 25 MG, 1X/DAY
     Route: 048
     Dates: start: 20220704

REACTIONS (3)
  - Alanine aminotransferase increased [Recovered/Resolved]
  - Aspartate aminotransferase increased [Recovered/Resolved]
  - Gamma-glutamyltransferase increased [Recovering/Resolving]

NARRATIVE: CASE EVENT DATE: 20220708
